FAERS Safety Report 10975572 (Version 1)
Quarter: 2015Q2

REPORT INFORMATION
  Report Type: Spontaneous
  Country: US (occurrence: US)
  Receive Date: 20150401
  Receipt Date: 20150401
  Transmission Date: 20150821
  Serious: No
  Sender: FDA-Public Use
  Company Number: US-GLAXOSMITHKLINE-US2015GSK024644

PATIENT
  Age: 2 Year
  Sex: Male

DRUGS (10)
  1. ZOFRAN [Suspect]
     Active Substance: ONDANSETRON HYDROCHLORIDE
     Indication: VOMITING
     Dosage: UNK, U
  2. ACYCLOVIR. [Suspect]
     Active Substance: ACYCLOVIR
     Indication: ANTIVIRAL PROPHYLAXIS
     Dosage: UNK, U
  3. CLINDAMYCIN [Suspect]
     Active Substance: CLINDAMYCIN\CLINDAMYCIN PHOSPHATE
     Indication: ANTIBIOTIC PROPHYLAXIS
     Dosage: UNK, U
  4. DECADRON [Suspect]
     Active Substance: DEXAMETHASONE
     Dosage: UNK, U
  5. ACTIGALL [Suspect]
     Active Substance: URSODIOL
     Indication: GALLBLADDER DISORDER
     Dosage: UNK, U
  6. KEPPRA [Suspect]
     Active Substance: LEVETIRACETAM
     Indication: SEIZURE
     Dosage: UNK, U
  7. FLUCONAZOLE. [Suspect]
     Active Substance: FLUCONAZOLE
     Indication: ANTIFUNGAL PROPHYLAXIS
     Dosage: UNK, U
  8. BUSULFAN [Suspect]
     Active Substance: BUSULFAN
     Indication: PRODUCT USED FOR UNKNOWN INDICATION
     Dosage: UNK, U
  9. ACTIGALL [Suspect]
     Active Substance: URSODIOL
     Indication: LIVER DISORDER
  10. ZANTAC [Suspect]
     Active Substance: RANITIDINE HYDROCHLORIDE
     Indication: DYSPEPSIA
     Dosage: UNK, U

REACTIONS (4)
  - Decreased appetite [Unknown]
  - Fatigue [Unknown]
  - Mood altered [Unknown]
  - Asthenia [Unknown]
